FAERS Safety Report 18798468 (Version 3)
Quarter: 2021Q2

REPORT INFORMATION
  Report Type: Spontaneous
  Country: US (occurrence: US)
  Receive Date: 20210128
  Receipt Date: 20210410
  Transmission Date: 20210717
  Serious: No
  Sender: FDA-Public Use
  Company Number: US-SA-2021SA025932

PATIENT
  Sex: Female

DRUGS (1)
  1. DUPIXENT [Suspect]
     Active Substance: DUPILUMAB
     Indication: DERMATITIS ATOPIC
     Dosage: 300 MG, QOW
     Route: 058
     Dates: start: 20201204

REACTIONS (7)
  - Scar [Unknown]
  - Eye irritation [Unknown]
  - Urticaria [Unknown]
  - Blister [Unknown]
  - Cyst [Unknown]
  - Ocular hyperaemia [Unknown]
  - Dry eye [Unknown]
